FAERS Safety Report 4750057-3 (Version None)
Quarter: 2005Q3

REPORT INFORMATION
  Report Type: 
  Country: None (occurrence: None)
  Receive Date: 20050822
  Receipt Date: 20050810
  Transmission Date: 20060218
  Serious: Yes (Hospitalization)
  Sender: FDA-Public Use
  Company Number: 2005-08-0862

PATIENT
  Sex: 0

DRUGS (5)
  1. INTRON A [Suspect]
     Indication: METASTATIC RENAL CELL CARCINOMA
     Dosage: SUBCUTANEOUS
     Route: 058
  2. FUROSEMIDE [Concomitant]
  3. ACETAMINOPHEN W/ CODEINE [Concomitant]
  4. TEMAZEPAM [Concomitant]
  5. PARACETAMOL [Concomitant]

REACTIONS (6)
  - BLOOD POTASSIUM INCREASED [None]
  - DIARRHOEA [None]
  - LETHARGY [None]
  - MALAISE [None]
  - NAUSEA [None]
  - VOMITING [None]
